FAERS Safety Report 9638039 (Version 1)
Quarter: 2013Q4

REPORT INFORMATION
  Report Type: Spontaneous
  Country: US (occurrence: None)
  Receive Date: 20131021
  Receipt Date: 20131021
  Transmission Date: 20140711
  Serious: Yes (Life-Threatening)
  Sender: FDA-Public Use
  Company Number: None

PATIENT
  Sex: Male
  Weight: 86.18 kg

DRUGS (1)
  1. SYNTHROID [Suspect]

REACTIONS (2)
  - Myocardial infarction [None]
  - Cerebrovascular accident [None]
